FAERS Safety Report 8762220 (Version 2)
Quarter: 2012Q4

REPORT INFORMATION
  Report Type: 
  Country: DE (occurrence: DE)
  Receive Date: 20120830
  Receipt Date: 20121121
  Transmission Date: 20130627
  Serious: Yes (Death, Life-Threatening, Hospitalization)
  Sender: FDA-Public Use
  Company Number: DE-ROCHE-1107714

PATIENT
  Age: 51 Year
  Sex: Female
  Weight: 74 kg

DRUGS (7)
  1. AVASTIN [Suspect]
     Indication: BREAST CANCER METASTATIC
     Route: 042
     Dates: start: 20120731, end: 20120814
  2. PACLITAXEL [Suspect]
     Indication: BREAST CANCER METASTATIC
     Route: 042
     Dates: start: 20120731, end: 20120814
  3. FILGRASTIM [Concomitant]
     Indication: PROPHYLAXIS
     Route: 065
     Dates: start: 20120805, end: 20120809
  4. FILGRASTIM [Concomitant]
     Indication: NEUTROPENIA
  5. KEVATRIL [Concomitant]
     Indication: PROPHYLAXIS OF NAUSEA AND VOMITING
     Route: 042
     Dates: start: 20120731, end: 20120814
  6. DEXAMETHASON [Concomitant]
     Indication: PROPHYLAXIS OF NAUSEA AND VOMITING
     Route: 042
     Dates: start: 20120731, end: 20120814
  7. MCP [Concomitant]
     Indication: PROPHYLAXIS OF NAUSEA AND VOMITING
     Dosage: 30-40 Gtt
     Route: 048

REACTIONS (7)
  - Neutropenia [Fatal]
  - Sepsis [Fatal]
  - Multi-organ failure [Fatal]
  - Pulmonary embolism [Not Recovered/Not Resolved]
  - Metastases to lung [Unknown]
  - Skin lesion [Not Recovered/Not Resolved]
  - Cystitis [Not Recovered/Not Resolved]
